FAERS Safety Report 9366527 (Version 1)
Quarter: 2013Q2

REPORT INFORMATION
  Report Type: Spontaneous
  Country: US (occurrence: US)
  Receive Date: 20130625
  Receipt Date: 20130625
  Transmission Date: 20140414
  Serious: No
  Sender: FDA-Public Use
  Company Number: US-MYLANLABS-2013S1005961

PATIENT
  Age: 63 Year
  Sex: Male
  Weight: 80.74 kg

DRUGS (2)
  1. ATORVASTATIN [Suspect]
  2. TRILIPIX [Suspect]

REACTIONS (2)
  - Muscle spasms [Recovered/Resolved]
  - Insomnia [Recovered/Resolved]
